FAERS Safety Report 4399466-5 (Version None)
Quarter: 2004Q3

REPORT INFORMATION
  Report Type: 
  Country: None (occurrence: None)
  Receive Date: 20040712
  Receipt Date: 20040625
  Transmission Date: 20050211
  Serious: Yes (Hospitalization)
  Sender: FDA-Public Use
  Company Number: 2004-BP-04666BP

PATIENT
  Sex: Male

DRUGS (5)
  1. SPIRIVA [Suspect]
     Indication: CHRONIC OBSTRUCTIVE AIRWAYS DISEASE
     Dosage: 18 MCG (18 MCG), IH
     Route: 055
     Dates: start: 20040610, end: 20040610
  2. OXYGEN (OXYGEN) [Concomitant]
  3. ALBUTEROL ISALBUTAMOL) [Concomitant]
  4. PROTONIX [Concomitant]
  5. VERAPAMIL [Concomitant]

REACTIONS (4)
  - BRONCHOSPASM [None]
  - CONDITION AGGRAVATED [None]
  - DYSPNOEA [None]
  - HYPERSENSITIVITY [None]
